FAERS Safety Report 19492675 (Version 3)
Quarter: 2021Q3

REPORT INFORMATION
  Report Type: Spontaneous
  Country: IT (occurrence: IT)
  Receive Date: 20210705
  Receipt Date: 20210729
  Transmission Date: 20211014
  Serious: Yes (Hospitalization)
  Sender: FDA-Public Use
  Company Number: IT-ALLERGAN-2124438US

PATIENT
  Sex: Female

DRUGS (2)
  1. DELORAZEPAM [Suspect]
     Active Substance: DELORAZEPAM
     Indication: DRUG ABUSE
     Dosage: 20 MG
     Route: 065
     Dates: start: 20210616, end: 20210616
  2. ESCITALOPRAM OXALATE ? BP [Suspect]
     Active Substance: ESCITALOPRAM OXALATE
     Indication: DRUG ABUSE
     Dosage: OVERDOSE: 300 MG OF ESCITALOPRAM ORAL DROPS
     Route: 065
     Dates: start: 20210616, end: 20210616

REACTIONS (4)
  - Somnolence [Recovering/Resolving]
  - Confusional state [Recovering/Resolving]
  - Overdose [Unknown]
  - Drug abuse [Recovering/Resolving]

NARRATIVE: CASE EVENT DATE: 20210616
